FAERS Safety Report 9507879 (Version 3)
Quarter: 2013Q4

REPORT INFORMATION
  Report Type: Spontaneous
  Country: CO (occurrence: CO)
  Receive Date: 20130909
  Receipt Date: 20131028
  Transmission Date: 20140711
  Serious: Yes (Other)
  Sender: FDA-Public Use
  Company Number: CO-PFIZER INC-2013227853

PATIENT
  Age: 64 Year
  Sex: Female

DRUGS (4)
  1. SUTENT [Suspect]
     Indication: RENAL CANCER
     Dosage: 50 MG, 1X/DAY
     Route: 048
     Dates: start: 201111, end: 201305
  2. SUTENT [Suspect]
     Dosage: 12.5 MG AND 25 MG (37.5 MG), 1X/DAY
     Route: 048
     Dates: start: 201305
  3. VERAPAMIL [Concomitant]
     Indication: HYPERTENSION
     Dosage: 120 MG, 2X/DAY
     Route: 048
     Dates: start: 1998
  4. CAPTOPRIL [Concomitant]
     Indication: HYPERTENSION
     Dosage: 50 MG, 3X/DAY
     Route: 048
     Dates: start: 1998

REACTIONS (16)
  - Dengue fever [Recovered/Resolved]
  - Skin infection [Recovered/Resolved]
  - Influenza [Recovered/Resolved]
  - Gingival bleeding [Recovered/Resolved]
  - Burning sensation [Not Recovered/Not Resolved]
  - Gait disturbance [Not Recovered/Not Resolved]
  - Yellow skin [Not Recovered/Not Resolved]
  - Alopecia [Not Recovered/Not Resolved]
  - Reflux gastritis [Not Recovered/Not Resolved]
  - Dysgeusia [Not Recovered/Not Resolved]
  - Salivary hypersecretion [Not Recovered/Not Resolved]
  - Arthralgia [Not Recovered/Not Resolved]
  - Food craving [Not Recovered/Not Resolved]
  - Gastritis [Not Recovered/Not Resolved]
  - Local swelling [Not Recovered/Not Resolved]
  - Thyroid disorder [Not Recovered/Not Resolved]
